FAERS Safety Report 6347921-0 (Version None)
Quarter: 2009Q3

REPORT INFORMATION
  Report Type: 
  Country: None (occurrence: None)
  Receive Date: 20090910
  Receipt Date: 20090901
  Transmission Date: 20100115
  Serious: Yes (Other)
  Sender: FDA-Public Use
  Company Number: PHHY2009SE37381

PATIENT
  Age: 73 Year
  Sex: Female

DRUGS (3)
  1. GLEEVEC [Suspect]
  2. TASIGNA [Suspect]
     Indication: CHRONIC MYELOID LEUKAEMIA
  3. SPRYCEL [Concomitant]

REACTIONS (2)
  - DRUG INEFFECTIVE [None]
  - PLEURAL EFFUSION [None]
